FAERS Safety Report 7036853-0 (Version None)
Quarter: 2010Q4

REPORT INFORMATION
  Report Type: 
  Country: None (occurrence: None)
  Receive Date: 20101011
  Receipt Date: 20100929
  Transmission Date: 20110411
  Serious: Yes (Other)
  Sender: FDA-Public Use
  Company Number: US-JNJFOC-20101000652

PATIENT
  Age: 69 Year
  Sex: Male
  Weight: 82.7 kg

DRUGS (23)
  1. BLINDED; INFLIXIMAB, RECOMBINANT [Suspect]
     Indication: PEMPHIGUS
     Route: 042
  2. BLINDED; INFLIXIMAB, RECOMBINANT [Suspect]
     Route: 042
  3. BLINDED; INFLIXIMAB, RECOMBINANT [Suspect]
     Route: 042
  4. PLACEBO [Suspect]
     Indication: PEMPHIGUS
     Route: 042
  5. PLACEBO [Suspect]
     Route: 042
  6. PLACEBO [Suspect]
     Route: 042
  7. PREDNISONE [Concomitant]
     Indication: PEMPHIGUS
     Route: 048
  8. FOSAMAX [Concomitant]
     Indication: OSTEOPOROSIS PROPHYLAXIS
  9. PRILOSEC [Concomitant]
     Indication: GASTROOESOPHAGEAL REFLUX DISEASE
     Route: 048
  10. ACETAMINOPHEN [Concomitant]
     Indication: PEMPHIGUS
     Route: 048
  11. OYSTER CALCIUM WITH VITAMIN D [Concomitant]
     Indication: OSTEOPOROSIS PROPHYLAXIS
     Route: 061
  12. LIDEX [Concomitant]
     Indication: PEMPHIGUS
     Route: 061
  13. KLOR-CON [Concomitant]
     Indication: HYPOKALAEMIA
     Route: 048
  14. CITALOPRAM HYDROBROMIDE [Concomitant]
     Indication: MOOD ALTERED
     Route: 048
  15. CITALOPRAM HYDROBROMIDE [Concomitant]
     Indication: ANXIETY
     Route: 048
  16. HYDROCHLOROTHIAZIDE [Concomitant]
     Indication: HYPERTENSION
     Route: 048
  17. TRIAMCINOLONE [Concomitant]
     Indication: ORAL DISCOMFORT
     Route: 048
  18. PREDNISOLONE [Concomitant]
     Indication: OCULAR DISCOMFORT
     Route: 047
  19. MYCELEX [Concomitant]
     Indication: INFECTION
     Route: 048
  20. MULTI-VITAMINS [Concomitant]
     Route: 048
  21. BACTROBAN [Concomitant]
     Indication: PEMPHIGUS
     Route: 061
  22. IBUPROFEN [Concomitant]
     Route: 048
  23. FLUOCINONIDE [Concomitant]
     Indication: PEMPHIGUS
     Route: 061

REACTIONS (1)
  - LYMPHOPENIA [None]
